FAERS Safety Report 4501985-5 (Version None)
Quarter: 2004Q4

REPORT INFORMATION
  Report Type: 
  Country: None (occurrence: None)
  Receive Date: 20041115
  Receipt Date: 20041115
  Transmission Date: 20050328
  Serious: Yes (Death)
  Sender: FDA-Public Use
  Company Number: None

PATIENT
  Sex: Female
  Weight: 60.782 kg

DRUGS (4)
  1. DOXURUBICIN [Suspect]
     Indication: NON-HODGKIN'S LYMPHOMA
     Dosage: 43MG  DAY 1+15/DAY8 INTRAVENOUS
     Route: 042
     Dates: start: 20040818, end: 20040909
  2. VINCRISTINE [Suspect]
     Indication: NON-HODGKIN'S LYMPHOMA
     Dosage: 2MG  DAY 1+15/DAY8  INTRAVENOUS
     Route: 042
     Dates: start: 20040818, end: 20040909
  3. VINBLASTINE SULFATE [Suspect]
     Indication: NON-HODGKIN'S LYMPHOMA
     Dosage: 10MG DAY  1+15/DAY15  INTRAVENOUS
     Route: 042
     Dates: start: 20040818, end: 20040909
  4. ETOPOSIDE [Suspect]
     Indication: NON-HODGKIN'S LYMPHOMA
     Dosage: 103MG DAY 1+15/DAY15  INTRAVENOUS
     Route: 042
     Dates: start: 20040818, end: 20040909

REACTIONS (5)
  - COAGULOPATHY [None]
  - GASTROINTESTINAL HAEMORRHAGE [None]
  - RECTAL HAEMORRHAGE [None]
  - RENAL FAILURE [None]
  - RESPIRATORY FAILURE [None]
